FAERS Safety Report 17062021 (Version 1)
Quarter: 2019Q4

REPORT INFORMATION
  Report Type: Report from Study
  Country: None (occurrence: US)
  Receive Date: 20191121
  Receipt Date: 20191121
  Transmission Date: 20200122
  Serious: Yes (Other)
  Sender: FDA-Public Use
  Company Number: US-ABBVIE-19K-163-3006518-00

PATIENT
  Age: 81 Year
  Sex: Female

DRUGS (1)
  1. DUOPA [Suspect]
     Active Substance: CARBIDOPA\LEVODOPA
     Indication: PRODUCT USED FOR UNKNOWN INDICATION
     Route: 050
     Dates: end: 20191113

REACTIONS (2)
  - Fall [Recovered/Resolved]
  - Unintentional medical device removal [Not Recovered/Not Resolved]

NARRATIVE: CASE EVENT DATE: 20191113
